FAERS Safety Report 19170755 (Version 8)
Quarter: 2021Q2

REPORT INFORMATION
  Report Type: Report from Study
  Country: PL (occurrence: PL)
  Receive Date: 20210422
  Receipt Date: 20210615
  Transmission Date: 20210717
  Serious: Yes (Death, Life-Threatening, Hospitalization, Disabling, Other)
  Sender: FDA-Public Use
  Company Number: PL-CELGENEUS-POL-20210404815

PATIENT
  Sex: Female

DRUGS (4)
  1. PEG [Concomitant]
     Active Substance: POLYETHYLENE GLYCOLS
     Indication: PRODUCT USED FOR UNKNOWN INDICATION
     Route: 065
     Dates: start: 20210422
  2. OZANIMOD. [Suspect]
     Active Substance: OZANIMOD
     Indication: MULTIPLE SCLEROSIS
     Route: 048
     Dates: start: 20161027, end: 20201021
  3. OZANIMOD. [Suspect]
     Active Substance: OZANIMOD
     Route: 048
     Dates: end: 20210303
  4. SORBIFER DURULES [Concomitant]
     Indication: ANAEMIA PROPHYLAXIS
     Route: 048
     Dates: start: 20180626

REACTIONS (5)
  - COVID-19 [Fatal]
  - Enteritis [Not Recovered/Not Resolved]
  - Decubitus ulcer [Not Recovered/Not Resolved]
  - Lung abscess [Fatal]
  - Pneumonia [Recovering/Resolving]

NARRATIVE: CASE EVENT DATE: 20210217
